FAERS Safety Report 10673988 (Version 1)
Quarter: 2014Q4

REPORT INFORMATION
  Report Type: Spontaneous
  Country: US (occurrence: None)
  Receive Date: 20141222
  Receipt Date: 20141222
  Transmission Date: 20150529
  Serious: Yes (Other)
  Sender: FDA-Public Use
  Company Number: US-2014VAL000661

PATIENT
  Sex: Male

DRUGS (3)
  1. BROMOCRIPTINE MESYLATE (BROMOCRIPTINE MESYLATE) UNKNOWN [Suspect]
     Active Substance: BROMOCRIPTINE MESYLATE
     Indication: HYPERSOMNIA-BULIMIA SYNDROME
  2. AMANTADINE (AMANTADINE) (AMANTADINE) [Suspect]
     Active Substance: AMANTADINE
     Indication: HYPERSOMNIA-BULIMIA SYNDROME
  3. MODAFINAL (MODAFINIL) [Suspect]
     Active Substance: MODAFINIL
     Indication: HYPERSOMNIA-BULIMIA SYNDROME

REACTIONS (2)
  - Off label use [None]
  - Hypersomnia-bulimia syndrome [None]
